FAERS Safety Report 22005792 (Version 1)
Quarter: 2023Q1

REPORT INFORMATION
  Report Type: Spontaneous
  Country: NO (occurrence: NO)
  Receive Date: 20230217
  Receipt Date: 20230217
  Transmission Date: 20230417
  Serious: Yes (Other)
  Sender: FDA-Public Use
  Company Number: None

PATIENT
  Age: 33 Year
  Sex: Male

DRUGS (2)
  1. ISOFLURANE [Suspect]
     Active Substance: ISOFLURANE
     Indication: Sedative therapy
     Dosage: (DOSAGE TEXT: 3-7 ML/HOUR)
     Route: 065
     Dates: start: 20230130, end: 20230131
  2. ISOFLURANE [Suspect]
     Active Substance: ISOFLURANE
     Indication: Sedative therapy
     Dosage: AT AN UNSPECIFIED DOSE AND FREQUENCY (DOSAGE TEXT: 3-7 ML/HOUR) (ADDITIONAL INFORMATION ON DRUG: N01
     Route: 065
     Dates: start: 20230130, end: 20230131

REACTIONS (2)
  - Chromaturia [Recovering/Resolving]
  - Blood creatine phosphokinase increased [Recovering/Resolving]

NARRATIVE: CASE EVENT DATE: 20230131
